FAERS Safety Report 4932657-0 (Version None)
Quarter: 2006Q1

REPORT INFORMATION
  Report Type: 
  Country: None (occurrence: None)
  Receive Date: 20060301
  Receipt Date: 20060214
  Transmission Date: 20060701
  Serious: Yes (Death, Other)
  Sender: FDA-Public Use
  Company Number: 2005-02627

PATIENT
  Age: 76 Year
  Sex: Female

DRUGS (9)
  1. VELCADE [Suspect]
     Indication: MULTIPLE MYELOMA
     Dosage: 2.00 MG, INTRAVENOUS
     Route: 042
     Dates: start: 20051215
  2. DEXAMETHASONE (DEXAMETHASONE) MG [Suspect]
     Dosage: 40.00 MG, QD,
     Dates: start: 20051215, end: 20051216
  3. TRAMADOL HCL [Concomitant]
  4. FLUIMICIL (ACETYLCYSTEINE) [Concomitant]
  5. AUGMENTIN '125' [Concomitant]
  6. MORPHINE [Concomitant]
  7. METOCLOPRAMIDE HYDROCHLORIDE [Concomitant]
  8. AMOXI-CLAVULANICO (AMOXICILLIN, CLAVULANIC ACID) [Concomitant]
  9. FRAXIPARIN (HEPARIN-FRACTION, CALCIUM SALT) [Concomitant]

REACTIONS (11)
  - ALBUMIN URINE PRESENT [None]
  - C-REACTIVE PROTEIN INCREASED [None]
  - CARDIAC FAILURE [None]
  - CREATININE URINE DECREASED [None]
  - EPILEPSY [None]
  - GENERAL PHYSICAL CONDITION ABNORMAL [None]
  - HAEMOGLOBIN DECREASED [None]
  - HYPOCALCAEMIA [None]
  - PNEUMONIA [None]
  - SEPSIS [None]
  - UREA URINE INCREASED [None]
